FAERS Safety Report 19975125 (Version 2)
Quarter: 2021Q4

REPORT INFORMATION
  Report Type: Spontaneous
  Country: JP (occurrence: JP)
  Receive Date: 20211020
  Receipt Date: 20211109
  Transmission Date: 20220303
  Serious: Yes (Death, Hospitalization)
  Sender: FDA-Public Use
  Company Number: JP-TEVA-2021-JP-1966555

PATIENT
  Age: 58 Year
  Sex: Male

DRUGS (5)
  1. CEFTRIAXONE [Suspect]
     Active Substance: CEFTRIAXONE
     Indication: Streptococcal endocarditis
     Dosage: 2 GRAM DAILY;
     Route: 065
  2. VANCOMYCIN [Suspect]
     Active Substance: VANCOMYCIN
     Indication: Streptococcal endocarditis
     Dosage: 1 GRAM DAILY;
     Route: 065
  3. WARFARIN [Suspect]
     Active Substance: WARFARIN
     Indication: Anticoagulant therapy
     Route: 065
  4. PYOKTANIN [Concomitant]
     Indication: Product used for unknown indication
     Dosage: PYOKTANIN WAS APPLIED AFTER CARDIAC SURGERY
     Route: 065
  5. PENICILLIN G POTASSIUM [Concomitant]
     Active Substance: PENICILLIN G POTASSIUM
     Indication: Streptococcal endocarditis
     Dosage: DOSE- 24 MILLION UNITS/DAY
     Route: 042

REACTIONS (5)
  - Cerebral haemorrhage [Fatal]
  - Cerebral mass effect [Fatal]
  - Brain compression [Fatal]
  - Shock haemorrhagic [Fatal]
  - Drug ineffective [Unknown]
